FAERS Safety Report 20517117 (Version 5)
Quarter: 2022Q4

REPORT INFORMATION
  Report Type: Report from Study
  Country: JP (occurrence: JP)
  Receive Date: 20220225
  Receipt Date: 20221121
  Transmission Date: 20230113
  Serious: Yes (Life-Threatening, Hospitalization, Other)
  Sender: FDA-Public Use
  Company Number: JP-ASTELLAS-2022JP002674

PATIENT
  Age: 75 Year
  Sex: Male
  Weight: 60 kg

DRUGS (17)
  1. ENFORTUMAB VEDOTIN [Suspect]
     Active Substance: ENFORTUMAB VEDOTIN
     Indication: Bladder cancer
     Route: 041
     Dates: start: 20220126, end: 20220209
  2. ENFORTUMAB VEDOTIN [Suspect]
     Active Substance: ENFORTUMAB VEDOTIN
     Indication: Transitional cell carcinoma
  3. SOLU-MEDROL [Suspect]
     Active Substance: METHYLPREDNISOLONE SODIUM SUCCINATE
     Indication: Toxic epidermal necrolysis
     Route: 065
     Dates: start: 20220214, end: 20220216
  4. PREDNISOLONE [Suspect]
     Active Substance: PREDNISOLONE
     Indication: Toxic epidermal necrolysis
     Dosage: 60 MG(1 MG/KG), ONCE DAILY
     Route: 048
     Dates: start: 20220217, end: 20220222
  5. PREDNISOLONE [Suspect]
     Active Substance: PREDNISOLONE
     Route: 048
     Dates: start: 20220223, end: 20220226
  6. PREDNISOLONE [Suspect]
     Active Substance: PREDNISOLONE
     Route: 048
     Dates: start: 20220227, end: 20220301
  7. PREDNISOLONE [Suspect]
     Active Substance: PREDNISOLONE
     Route: 048
     Dates: start: 20220302, end: 20220304
  8. PREDNISOLONE [Suspect]
     Active Substance: PREDNISOLONE
     Route: 048
     Dates: start: 20220305, end: 20220308
  9. PREDNISOLONE [Suspect]
     Active Substance: PREDNISOLONE
     Route: 048
     Dates: start: 20220309, end: 20220310
  10. ACETAMINOPHEN [Concomitant]
     Active Substance: ACETAMINOPHEN
     Indication: Pyrexia
     Dosage: 1000 MG, ONCE DAILY (CONCENTRA: 1000 MG/100 ML)
     Route: 065
     Dates: start: 20220207, end: 20220215
  11. BELSOMRA [Concomitant]
     Active Substance: SUVOREXANT
     Indication: Delirium
     Route: 048
     Dates: start: 20220211, end: 20220226
  12. DIFLORASONE DIACETATE [Concomitant]
     Active Substance: DIFLORASONE DIACETATE
     Indication: Toxic epidermal necrolysis
     Route: 065
     Dates: start: 20220214, end: 20220217
  13. HUMULIN R [Concomitant]
     Active Substance: INSULIN HUMAN
     Indication: Hyperglycaemia
     Dosage: MODERATE AMOUNT, DOSE DETERMINED BY SLIDING SCALE BEFORE EACH MEAL
     Route: 065
     Dates: start: 202202, end: 20220424
  14. KENKETU GLOVENIN-I [Concomitant]
     Active Substance: HUMAN IMMUNOGLOBULIN G
     Indication: Toxic epidermal necrolysis
     Route: 065
     Dates: start: 20220217, end: 20220221
  15. Azunol [Concomitant]
     Indication: Toxic epidermal necrolysis
     Route: 065
     Dates: start: 20220218, end: 20220307
  16. JANUVIA [Concomitant]
     Active Substance: SITAGLIPTIN PHOSPHATE
     Indication: Type 2 diabetes mellitus
     Dosage: UNK UNK, UNKNOWN FREQ.
     Route: 065
  17. HUMAN RED BLOOD CELL [Concomitant]
     Active Substance: HUMAN RED BLOOD CELL
     Indication: Anaemia
     Route: 065

REACTIONS (6)
  - Pyrexia [Recovered/Resolved]
  - Delirium [Recovered/Resolved]
  - Toxic epidermal necrolysis [Recovered/Resolved]
  - Platelet count decreased [Recovered/Resolved]
  - Anaemia [Recovering/Resolving]
  - Hyperglycaemia [Recovered/Resolved]

NARRATIVE: CASE EVENT DATE: 20220201
